FAERS Safety Report 9231531 (Version 2)
Quarter: 2013Q2

REPORT INFORMATION
  Report Type: Report from Study
  Country: JP (occurrence: JP)
  Receive Date: 20130415
  Receipt Date: 20130523
  Transmission Date: 20140414
  Serious: Yes (Other)
  Sender: FDA-Public Use
  Company Number: JP-GLAXOSMITHKLINE-B0883273A

PATIENT
  Age: 56 Year
  Sex: Female
  Weight: 51 kg

DRUGS (40)
  1. REVOLADE [Suspect]
     Indication: IDIOPATHIC THROMBOCYTOPENIC PURPURA
     Route: 048
     Dates: start: 20110317, end: 20111012
  2. REVOLADE [Suspect]
     Indication: IDIOPATHIC THROMBOCYTOPENIC PURPURA
     Route: 048
     Dates: start: 20111013, end: 20120229
  3. REVOLADE [Suspect]
     Indication: IDIOPATHIC THROMBOCYTOPENIC PURPURA
     Route: 048
     Dates: start: 20120301, end: 20120509
  4. REVOLADE [Suspect]
     Indication: IDIOPATHIC THROMBOCYTOPENIC PURPURA
     Route: 048
     Dates: start: 20120510, end: 20130109
  5. REVOLADE [Suspect]
     Indication: IDIOPATHIC THROMBOCYTOPENIC PURPURA
     Route: 048
     Dates: start: 20130110
  6. PARIET [Concomitant]
     Route: 048
  7. FERROMIA [Concomitant]
     Route: 048
     Dates: start: 20110317, end: 20110525
  8. FLAVITAN [Concomitant]
     Route: 048
  9. FLAVITAN [Concomitant]
     Route: 048
  10. BONALON [Concomitant]
     Route: 048
     Dates: start: 20121227, end: 20130315
  11. BONZOL [Concomitant]
     Route: 048
  12. MEDROL [Concomitant]
     Indication: IDIOPATHIC THROMBOCYTOPENIC PURPURA
     Route: 048
  13. MEDROL [Concomitant]
     Indication: IDIOPATHIC THROMBOCYTOPENIC PURPURA
     Route: 048
     Dates: start: 20110915, end: 20111120
  14. MEDROL [Concomitant]
     Indication: IDIOPATHIC THROMBOCYTOPENIC PURPURA
     Route: 048
     Dates: start: 20111201, end: 20120118
  15. MEDROL [Concomitant]
     Indication: IDIOPATHIC THROMBOCYTOPENIC PURPURA
     Route: 048
     Dates: start: 20120119
  16. MEDROL [Concomitant]
     Indication: IDIOPATHIC THROMBOCYTOPENIC PURPURA
     Route: 048
     Dates: start: 20120412, end: 20121010
  17. MEDROL [Concomitant]
     Indication: IDIOPATHIC THROMBOCYTOPENIC PURPURA
     Route: 048
     Dates: start: 20121011, end: 20121226
  18. MEDROL [Concomitant]
     Indication: IDIOPATHIC THROMBOCYTOPENIC PURPURA
     Route: 048
     Dates: start: 20121227, end: 20130109
  19. MEDROL [Concomitant]
     Indication: IDIOPATHIC THROMBOCYTOPENIC PURPURA
     Route: 048
     Dates: start: 20130110, end: 20130203
  20. MEDROL [Concomitant]
     Indication: IDIOPATHIC THROMBOCYTOPENIC PURPURA
     Route: 048
     Dates: start: 20130207, end: 20130313
  21. MEDROL [Concomitant]
     Indication: IDIOPATHIC THROMBOCYTOPENIC PURPURA
     Route: 048
     Dates: start: 20130314
  22. LIPOVAS [Concomitant]
     Route: 048
  23. LENDORMIN [Concomitant]
     Route: 048
     Dates: end: 20121219
  24. MAGNESIUM OXIDE [Concomitant]
     Route: 048
     Dates: start: 20110317
  25. FLOMOX [Concomitant]
     Route: 048
     Dates: start: 20111115, end: 20111118
  26. FLOMOX [Concomitant]
     Route: 048
     Dates: start: 20111122, end: 20111125
  27. ALFAROL [Concomitant]
     Route: 048
     Dates: start: 20110315
  28. ALFAROL [Concomitant]
     Route: 048
  29. DICLOD [Concomitant]
     Route: 065
     Dates: start: 20111114
  30. CRAVIT [Concomitant]
     Route: 065
     Dates: start: 20111114
  31. BESTRON [Concomitant]
     Route: 031
     Dates: start: 20111102, end: 20111102
  32. RINDERON [Concomitant]
     Route: 031
     Dates: start: 20111114, end: 20111114
  33. SANDOL P [Concomitant]
     Route: 031
     Dates: start: 20111114, end: 20111121
  34. ASPARA-CA [Concomitant]
     Route: 048
     Dates: start: 20120315
  35. ASPARA-CA [Concomitant]
     Route: 048
  36. EDIROL [Concomitant]
     Dates: start: 20120412
  37. POSTERISAN [Concomitant]
     Route: 061
     Dates: start: 20120719, end: 20120801
  38. POSTERISAN [Concomitant]
     Route: 061
     Dates: start: 20130121, end: 20130203
  39. POSTERISAN [Concomitant]
     Route: 061
     Dates: start: 20130207
  40. BORRAZA-G [Concomitant]
     Route: 054
     Dates: start: 20121227, end: 20130110

REACTIONS (27)
  - Haemorrhage [Recovered/Resolved]
  - Hypertrophic cardiomyopathy [Not Recovered/Not Resolved]
  - Haemorrhage subcutaneous [Recovering/Resolving]
  - Local swelling [Not Recovered/Not Resolved]
  - Epistaxis [Recovering/Resolving]
  - Osteoporosis [Not Recovered/Not Resolved]
  - Cervical radiculopathy [Not Recovered/Not Resolved]
  - Rash [Recovering/Resolving]
  - Arrhythmia [Unknown]
  - Epistaxis [Recovering/Resolving]
  - Hypoaesthesia [Unknown]
  - Haematuria [Unknown]
  - Gingival inflammation [Unknown]
  - Erythema [Not Recovered/Not Resolved]
  - Rash pruritic [Recovering/Resolving]
  - Headache [Recovering/Resolving]
  - Epistaxis [Recovering/Resolving]
  - Back pain [Not Recovered/Not Resolved]
  - Asthenia [Not Recovered/Not Resolved]
  - Dyspnoea [Unknown]
  - Constipation [Not Recovered/Not Resolved]
  - Vomiting [Recovering/Resolving]
  - Vomiting [Unknown]
  - Hepatic function abnormal [Recovering/Resolving]
  - Intervertebral disc protrusion [Not Recovered/Not Resolved]
  - Arthralgia [Recovering/Resolving]
  - White blood cell count increased [Recovering/Resolving]
